FAERS Safety Report 14508415 (Version 1)
Quarter: 2018Q1

REPORT INFORMATION
  Report Type: Spontaneous
  Country: CN (occurrence: CN)
  Receive Date: 20180209
  Receipt Date: 20180209
  Transmission Date: 20180509
  Serious: Yes (Disabling)
  Sender: FDA-Public Use
  Company Number: CN-BAXTER-2018BAX004133

PATIENT
  Age: 82 Year
  Sex: Female
  Weight: 50 kg

DRUGS (3)
  1. FUROSEMIDE. [Suspect]
     Active Substance: FUROSEMIDE
     Indication: CEREBROVASCULAR DISORDER
     Route: 042
     Dates: start: 20171211, end: 20171222
  2. 20% MANNITOL INJECTION [Suspect]
     Active Substance: MANNITOL
     Indication: CEREBROVASCULAR DISORDER
  3. 20% MANNITOL INJECTION [Suspect]
     Active Substance: MANNITOL
     Indication: HYDROCEPHALUS
     Route: 041
     Dates: start: 20171211, end: 20171214

REACTIONS (1)
  - Acute kidney injury [Recovered/Resolved]

NARRATIVE: CASE EVENT DATE: 20171213
